FAERS Safety Report 11209482 (Version 1)
Quarter: 2015Q2

REPORT INFORMATION
  Report Type: Spontaneous
  Country: US (occurrence: US)
  Receive Date: 20150622
  Receipt Date: 20150622
  Transmission Date: 20150821
  Serious: Yes (Other)
  Sender: FDA-Public Use
  Company Number: PHEH2015US011609

PATIENT
  Sex: Female

DRUGS (2)
  1. ARCAPTA NEOHALER [Suspect]
     Active Substance: INDACATEROL MALEATE
     Dosage: 4 DF, QD (4 PILLS DAILY)
     Route: 065
  2. ARCAPTA NEOHALER [Suspect]
     Active Substance: INDACATEROL MALEATE
     Indication: PRODUCT USED FOR UNKNOWN INDICATION
     Dosage: 2 DF, QD (2 PILLS DAILY)
     Route: 065

REACTIONS (1)
  - Aortic aneurysm [Unknown]
